FAERS Safety Report 4551201-3 (Version None)
Quarter: 2005Q1

REPORT INFORMATION
  Report Type: 
  Country: None (occurrence: None)
  Receive Date: 20050106
  Receipt Date: 20041222
  Transmission Date: 20050727
  Serious: Yes (Death)
  Sender: FDA-Public Use
  Company Number: 2004JP002289

PATIENT
  Age: 38 Year
  Sex: Male

DRUGS (2)
  1. PROGRAF [Suspect]
     Indication: BONE MARROW TRANSPLANT
  2. PREDNISOLONE [Concomitant]

REACTIONS (8)
  - ABDOMINAL PAIN UPPER [None]
  - CHEST PAIN [None]
  - COAGULOPATHY [None]
  - GASTROINTESTINAL DISORDER [None]
  - HEPATITIS [None]
  - HERPES ZOSTER [None]
  - MULTI-ORGAN FAILURE [None]
  - OBLITERATIVE BRONCHIOLITIS [None]
